FAERS Safety Report 13192501 (Version 1)
Quarter: 2017Q1

REPORT INFORMATION
  Report Type: Spontaneous
  Country: US (occurrence: US)
  Receive Date: 20170207
  Receipt Date: 20170207
  Transmission Date: 20170428
  Serious: Yes (Hospitalization)
  Sender: FDA-Public Use
  Company Number: None

PATIENT
  Age: 74 Year
  Sex: Male
  Weight: 110.2 kg

DRUGS (1)
  1. KEYTRUDA [Suspect]
     Active Substance: PEMBROLIZUMAB
     Indication: MALIGNANT MELANOMA
     Dates: end: 20170203

REACTIONS (5)
  - Body temperature increased [None]
  - Headache [None]
  - Tremor [None]
  - Asthenia [None]
  - Platelet count decreased [None]

NARRATIVE: CASE EVENT DATE: 20170203
